FAERS Safety Report 9028267 (Version 1)
Quarter: 2013Q1

REPORT INFORMATION
  Report Type: Spontaneous
  Country: US (occurrence: US)
  Receive Date: 20130124
  Receipt Date: 20130124
  Transmission Date: 20140127
  Serious: No
  Sender: FDA-Public Use
  Company Number: US-PFIZER INC-2013030619

PATIENT
  Age: 24 Year
  Sex: Female
  Weight: 52.2 kg

DRUGS (2)
  1. PRISTIQ [Suspect]
     Indication: SOCIAL PHOBIA
     Dosage: 50 MG, 1X/DAY
     Route: 048
  2. PRISTIQ [Suspect]
     Dosage: 50 MG, ALTERNATE DAY
     Route: 048

REACTIONS (2)
  - Dizziness [Unknown]
  - Nausea [Unknown]
